FAERS Safety Report 6422004-X (Version None)
Quarter: 2009Q4

REPORT INFORMATION
  Report Type: 
  Country: None (occurrence: None)
  Receive Date: 20091030
  Receipt Date: 20091021
  Transmission Date: 20100525
  Serious: Yes (Hospitalization)
  Sender: FDA-Public Use
  Company Number: US-ELI_LILLY_AND_COMPANY-US200910006049

PATIENT
  Sex: Male
  Weight: 77.7 kg

DRUGS (14)
  1. PEMETREXED [Suspect]
     Indication: HEAD AND NECK CANCER
     Dosage: 500 MG/M2, OTHER
     Route: 042
     Dates: start: 20090916
  2. CETUXIMAB [Suspect]
     Indication: HEAD AND NECK CANCER
     Dosage: 400 MG/M2, WEEKLY (1/W)
     Route: 042
     Dates: start: 20090910, end: 20090910
  3. CETUXIMAB [Suspect]
     Dosage: 250 MG/M2, OTHER
     Route: 042
     Dates: start: 20090901
  4. BEVACIZUMAB [Suspect]
     Indication: HEAD AND NECK CANCER
     Dosage: 15 MG/KG, OTHER
     Route: 042
     Dates: start: 20090916
  5. RADIATION [Suspect]
     Indication: HEAD AND NECK CANCER
     Dosage: 70 D/F, OTHER
     Dates: start: 20090916
  6. FOLIC ACID [Concomitant]
  7. FENTANYL-100 [Concomitant]
  8. OXYCODONE [Concomitant]
  9. CLINDAGEL [Concomitant]
  10. MINOCYCLINE [Concomitant]
  11. PRILOSEC [Concomitant]
  12. SENNA [Concomitant]
  13. COLACE [Concomitant]
  14. MIRALAX [Concomitant]

REACTIONS (3)
  - MUCOSAL INFLAMMATION [None]
  - PAIN [None]
  - PYREXIA [None]
